FAERS Safety Report 6625902-7 (Version None)
Quarter: 2010Q1

REPORT INFORMATION
  Report Type: 
  Country: None (occurrence: None)
  Receive Date: 20100305
  Receipt Date: 20100301
  Transmission Date: 20100710
  Serious: Yes (Life-Threatening, Hospitalization, Other)
  Sender: FDA-Public Use
  Company Number: 008029

PATIENT
  Sex: Female
  Weight: 68.2 kg

DRUGS (1)
  1. LEVETIRACETAM [Suspect]
     Indication: CONVULSION
     Dosage: (750 MG BID, STARTED 2 YEARS AGO ORAL)
     Route: 048

REACTIONS (6)
  - BRONCHITIS [None]
  - PNEUMONIA [None]
  - PYREXIA [None]
  - RESPIRATORY FAILURE [None]
  - SPEECH DISORDER [None]
  - TREMOR [None]
